FAERS Safety Report 5344995-0 (Version None)
Quarter: 2007Q2

REPORT INFORMATION
  Report Type: 
  Country: None (occurrence: None)
  Receive Date: 20070416
  Receipt Date: 20061221
  Transmission Date: 20071010
  Serious: No
  Sender: FDA-Public Use
  Company Number: 2006SP004473

PATIENT
  Age: 54 Year
  Sex: Female
  Weight: 59.8748 kg

DRUGS (5)
  1. LUNESTA [Suspect]
     Indication: INSOMNIA
     Dosage: SEE IMAGE
     Route: 048
     Dates: start: 20061218, end: 20061218
  2. LUNESTA [Suspect]
     Indication: INSOMNIA
     Dosage: SEE IMAGE
     Route: 048
     Dates: start: 20061219, end: 20061220
  3. DIPHENHYDRAMINE HYDROCHLORIDE [Concomitant]
  4. TYLENOL [Concomitant]
  5. PLANT ALKALOIDS AND OTHER NATURAL PRODUCTS [Concomitant]

REACTIONS (3)
  - BREATH ODOUR [None]
  - DYSGEUSIA [None]
  - MIDDLE INSOMNIA [None]
